FAERS Safety Report 17923442 (Version 1)
Quarter: 2020Q2

REPORT INFORMATION
  Report Type: Spontaneous
  Country: US (occurrence: US)
  Receive Date: 20200622
  Receipt Date: 20200622
  Transmission Date: 20200714
  Serious: Yes (Life-Threatening, Hospitalization, Other)
  Sender: FDA-Public Use
  Company Number: US-PFIZER INC-2020237564

PATIENT
  Age: 40 Year
  Sex: Male

DRUGS (1)
  1. TESTOSTERONE CIPIONATE [Suspect]
     Active Substance: TESTOSTERONE
     Dosage: UNK

REACTIONS (11)
  - Aortic valve incompetence [Recovered/Resolved]
  - Cardiac valve vegetation [Recovered/Resolved]
  - Aortic aneurysm [Recovered/Resolved]
  - Self-medication [Unknown]
  - Streptococcal infection [Recovered/Resolved]
  - Sepsis [Recovered/Resolved]
  - Mitral valve incompetence [Recovered/Resolved]
  - Spinal cord compression [Recovered/Resolved]
  - Spinal cord abscess [Recovered/Resolved]
  - Intervertebral discitis [Recovered/Resolved]
  - Endocarditis [Recovered/Resolved]
